FAERS Safety Report 10272795 (Version 1)
Quarter: 2014Q3

REPORT INFORMATION
  Report Type: Spontaneous
  Country: US (occurrence: US)
  Receive Date: 20140702
  Receipt Date: 20140702
  Transmission Date: 20150326
  Serious: Yes (Hospitalization)
  Sender: FDA-Public Use
  Company Number: PHHY2014US078751

PATIENT
  Age: 64 Year
  Sex: Female

DRUGS (3)
  1. RIBAVIRIN. [Suspect]
     Active Substance: RIBAVIRIN
     Indication: HEPATITIS C
     Dosage: 1200 MG, UNK
  2. PEGYLATED INTERFERON ALPHA NOS [Suspect]
     Active Substance: PEGINTERFERON ALFA-2A OR PEGINTERFERON ALFA-2B
     Indication: HEPATITIS C
     Dosage: 0.18 MG, QW (180 MCG/WEEK)
  3. TELAPREVIR [Concomitant]
     Active Substance: TELAPREVIR
     Indication: HEPATITIS C

REACTIONS (13)
  - Asthenia [Unknown]
  - Chest discomfort [Unknown]
  - Haemolytic anaemia [Unknown]
  - Hypotension [Unknown]
  - Palpitations [Unknown]
  - Tachycardia [Unknown]
  - Anaemia [Unknown]
  - Dizziness [Unknown]
  - Thrombocytopenia [Unknown]
  - Fatigue [Unknown]
  - Pallor [Unknown]
  - Leukopenia [Unknown]
  - Dyspnoea exertional [Unknown]
